FAERS Safety Report 6945240-2 (Version None)
Quarter: 2010Q3

REPORT INFORMATION
  Report Type: 
  Country: None (occurrence: None)
  Receive Date: 20100827
  Receipt Date: 20100623
  Transmission Date: 20110219
  Serious: No
  Sender: FDA-Public Use
  Company Number: US-KINGPHARMUSA00001-K201000814

PATIENT
  Sex: Male

DRUGS (6)
  1. FLECTOR [Suspect]
     Indication: BACK PAIN
     Dosage: 1 PATCH, Q12H
     Route: 061
     Dates: start: 20100610, end: 20100601
  2. DICLOFENAC POTASSIUM [Suspect]
     Dosage: 25 MG, QOD
     Route: 048
  3. ALLOPURINOL [Concomitant]
     Indication: BLOOD PRESSURE INCREASED
     Dosage: UNK
  4. ASPIRIN [Concomitant]
     Dosage: 81 MG, QD
     Route: 048
  5. LOSARTAN POTASSIUM [Concomitant]
     Indication: BLOOD PRESSURE INCREASED
     Dosage: UNK
  6. ALBUTEROL [Concomitant]
     Indication: ASTHMA
     Dosage: UNK

REACTIONS (2)
  - APPLICATION SITE DISCOLOURATION [None]
  - APPLICATION SITE IRRITATION [None]
